FAERS Safety Report 20037028 (Version 1)
Quarter: 2021Q4

REPORT INFORMATION
  Report Type: Other
  Country: US (occurrence: None)
  Receive Date: 20211105
  Receipt Date: 20211105
  Transmission Date: 20220303
  Serious: Yes (Other)
  Sender: FDA-Public Use
  Company Number: US-ROCHE-2829673

PATIENT
  Sex: Female

DRUGS (6)
  1. ENSPRYNG [Suspect]
     Active Substance: SATRALIZUMAB-MWGE
     Indication: Cutaneous lupus erythematosus
     Dosage: INJECT SUBCUTANEOUSLY EVERY 28 DAY
     Route: 058
     Dates: start: 20210404
  2. ENSPRYNG [Suspect]
     Active Substance: SATRALIZUMAB-MWGE
  3. ENSPRYNG [Suspect]
     Active Substance: SATRALIZUMAB-MWGE
  4. ENSPRYNG [Suspect]
     Active Substance: SATRALIZUMAB-MWGE
     Indication: Neuromyelitis optica spectrum disorder
     Route: 058
     Dates: start: 20210419
  5. ENSPRYNG [Suspect]
     Active Substance: SATRALIZUMAB-MWGE
  6. ENSPRYNG [Suspect]
     Active Substance: SATRALIZUMAB-MWGE

REACTIONS (5)
  - Renal neoplasm [Unknown]
  - Rash [Unknown]
  - Dry skin [Unknown]
  - Blister [Unknown]
  - Pain [Unknown]
